FAERS Safety Report 8315330-0 (Version None)
Quarter: 2012Q2

REPORT INFORMATION
  Report Type: 
  Country: None (occurrence: None)
  Receive Date: 20120426
  Receipt Date: 20120418
  Transmission Date: 20120825
  Serious: Yes (Hospitalization, Other)
  Sender: FDA-Public Use
  Company Number: US-ELI_LILLY_AND_COMPANY-US201204006592

PATIENT
  Sex: Female

DRUGS (2)
  1. HUMALOG [Suspect]
     Indication: DIABETES MELLITUS
     Dosage: UNK UNK, PRN
     Dates: start: 20120101
  2. HUMALOG [Suspect]
     Dosage: UNK UNK, PRN
     Dates: start: 20120101

REACTIONS (5)
  - LACERATION [None]
  - HEAD INJURY [None]
  - BLOOD GLUCOSE INCREASED [None]
  - SOMNOLENCE [None]
  - FALL [None]
